FAERS Safety Report 25050335 (Version 1)
Quarter: 2025Q1

REPORT INFORMATION
  Report Type: Spontaneous
  Country: US (occurrence: None)
  Receive Date: 20250306
  Receipt Date: 20250306
  Transmission Date: 20250409
  Serious: Yes (Hospitalization)
  Sender: FDA-CTU
  Company Number: None

PATIENT
  Age: 69 Year
  Sex: Female
  Weight: 45 kg

DRUGS (7)
  1. PACLITAXEL [Suspect]
     Active Substance: PACLITAXEL
     Indication: Lung neoplasm malignant
     Route: 042
     Dates: start: 20241127, end: 20241127
  2. NIVOLUMAB [Concomitant]
     Active Substance: NIVOLUMAB
     Dates: start: 20241127, end: 20241127
  3. CARBOPLATIN [Concomitant]
     Active Substance: CARBOPLATIN
     Dates: start: 20241127, end: 20241127
  4. DIPHENHYDRAMINE [Concomitant]
     Active Substance: DIPHENHYDRAMINE
     Dates: start: 20241127, end: 20241127
  5. DEXAMETHASONE [Concomitant]
     Active Substance: DEXAMETHASONE
     Dates: start: 20241127, end: 20241127
  6. PALONOSETRON [Concomitant]
     Active Substance: PALONOSETRON
     Dates: start: 20241127, end: 20241127
  7. Aprepitant emulsion [Concomitant]
     Dates: start: 20241127, end: 20241127

REACTIONS (3)
  - Respiratory failure [None]
  - Encephalopathy [None]
  - Drug hypersensitivity [None]

NARRATIVE: CASE EVENT DATE: 20241127
